FAERS Safety Report 13130693 (Version 2)
Quarter: 2017Q1

REPORT INFORMATION
  Report Type: Spontaneous
  Country: IL (occurrence: IL)
  Receive Date: 20170119
  Receipt Date: 20170303
  Transmission Date: 20170428
  Serious: Yes (Other)
  Sender: FDA-Public Use
  Company Number: IL-PFIZER INC-2017016858

PATIENT
  Age: 46 Year
  Sex: Female

DRUGS (1)
  1. PALBOCICLIB [Suspect]
     Active Substance: PALBOCICLIB
     Indication: BREAST CANCER METASTATIC
     Dosage: 125 MG, UNK
     Dates: start: 20160301

REACTIONS (2)
  - Second primary malignancy [Recovering/Resolving]
  - Neuroendocrine tumour [Recovering/Resolving]

NARRATIVE: CASE EVENT DATE: 20161001
